FAERS Safety Report 22292630 (Version 1)
Quarter: 2023Q2

REPORT INFORMATION
  Report Type: Spontaneous
  Country: CN (occurrence: CN)
  Receive Date: 20230508
  Receipt Date: 20230508
  Transmission Date: 20230721
  Serious: Yes (Other)
  Sender: FDA-Public Use
  Company Number: CN-PFIZER INC-PV202300075468

PATIENT
  Age: 8 Year
  Sex: Male
  Weight: 32 kg

DRUGS (1)
  1. LINEZOLID [Suspect]
     Active Substance: LINEZOLID
     Indication: Head injury
     Dosage: 0.6 G, 3X/DAY
     Route: 041
     Dates: start: 20230325, end: 20230328

REACTIONS (2)
  - Haematemesis [Recovered/Resolved]
  - Hiccups [Recovering/Resolving]

NARRATIVE: CASE EVENT DATE: 20230328
